FAERS Safety Report 21343065 (Version 1)
Quarter: 2022Q3

REPORT INFORMATION
  Report Type: Spontaneous
  Country: US (occurrence: US)
  Receive Date: 20220916
  Receipt Date: 20220916
  Transmission Date: 20221026
  Serious: No
  Sender: FDA-Public Use
  Company Number: US-PFIZER INC-202201160901

PATIENT
  Age: 51 Year
  Sex: Female
  Weight: 63.5 kg

DRUGS (2)
  1. XELJANZ [Suspect]
     Active Substance: TOFACITINIB CITRATE
     Indication: Pain in extremity
     Dosage: 5 MG, DAILY (ONE TABLET DAILY UNLESS SHE FELT PAIN COME BACK ONE DAY, BUT THEN MOSTLY ONCE DAILY)
     Route: 048
     Dates: start: 20220525, end: 202207
  2. XELJANZ [Suspect]
     Active Substance: TOFACITINIB CITRATE
     Indication: Peripheral swelling
     Dosage: UNK
     Dates: start: 2022

REACTIONS (6)
  - COVID-19 [Recovered/Resolved]
  - Illness [Unknown]
  - Chest pain [Not Recovered/Not Resolved]
  - Contusion [Not Recovered/Not Resolved]
  - Rash macular [Not Recovered/Not Resolved]
  - Gait disturbance [Unknown]

NARRATIVE: CASE EVENT DATE: 20220101
